FAERS Safety Report 22087949 (Version 2)
Quarter: 2023Q1

REPORT INFORMATION
  Report Type: Report from Study
  Country: AR (occurrence: AR)
  Receive Date: 20230313
  Receipt Date: 20230329
  Transmission Date: 20230418
  Serious: Yes (Hospitalization)
  Sender: FDA-Public Use
  Company Number: AR-002147023-NVSC2023AR055815

PATIENT
  Sex: Male

DRUGS (3)
  1. RYDAPT [Suspect]
     Active Substance: MIDOSTAURIN
     Indication: Systemic mastocytosis
     Dosage: 50 MG, QD (BY MOUTH)
     Route: 048
     Dates: start: 20181228
  2. INSULIN NOS [Concomitant]
     Active Substance: INSULIN NOS
     Indication: Product used for unknown indication
     Dosage: UNK
     Route: 065
  3. METFORMIN [Concomitant]
     Active Substance: METFORMIN HYDROCHLORIDE
     Indication: Product used for unknown indication
     Dosage: UNK
     Route: 065

REACTIONS (2)
  - Diabetes mellitus [Unknown]
  - Inappropriate schedule of product administration [Unknown]

NARRATIVE: CASE EVENT DATE: 20180101
